FAERS Safety Report 6891707-5 (Version None)
Quarter: 2010Q3

REPORT INFORMATION
  Report Type: 
  Country: None (occurrence: None)
  Receive Date: 20100731
  Receipt Date: 20071030
  Transmission Date: 20110219
  Serious: Yes (Hospitalization, Other)
  Sender: FDA-Public Use
  Company Number: US-PFIZER INC-2007082153

PATIENT
  Sex: Female
  Weight: 52.2 kg

DRUGS (1)
  1. NEURONTIN [Suspect]
     Route: 048

REACTIONS (4)
  - HYPERSENSITIVITY [None]
  - NAUSEA [None]
  - PRURITUS [None]
  - RASH [None]
